FAERS Safety Report 23876661 (Version 1)
Quarter: 2024Q2

REPORT INFORMATION
  Report Type: Report from Study
  Country: CO (occurrence: CO)
  Receive Date: 20240521
  Receipt Date: 20240521
  Transmission Date: 20240715
  Serious: Yes (Other)
  Sender: FDA-Public Use
  Company Number: CO-NOVOPROD-1192122

PATIENT
  Age: 78 Year
  Sex: Male
  Weight: 70 kg

DRUGS (4)
  1. METFORMIN [Concomitant]
     Active Substance: METFORMIN HYDROCHLORIDE
     Indication: Type 2 diabetes mellitus
     Dosage: 2 TABLETS, DAILY
     Route: 048
     Dates: start: 1997
  2. LEVEMIR [Suspect]
     Active Substance: INSULIN DETEMIR
     Dosage: 32 IU, QD
     Route: 058
     Dates: end: 202208
  3. LEVEMIR [Suspect]
     Active Substance: INSULIN DETEMIR
     Indication: Type 2 diabetes mellitus
     Dosage: 42 IU, QD
     Route: 058
     Dates: start: 20090409
  4. INSULIN GLULISINE [Concomitant]
     Active Substance: INSULIN GLULISINE
     Indication: Type 2 diabetes mellitus
     Dosage: 12 IU, QD
     Route: 058

REACTIONS (2)
  - Diabetic neuropathy [Unknown]
  - Cataract [Not Recovered/Not Resolved]

NARRATIVE: CASE EVENT DATE: 20140101
